FAERS Safety Report 7240187-9 (Version None)
Quarter: 2011Q1

REPORT INFORMATION
  Report Type: 
  Country: None (occurrence: None)
  Receive Date: 20110124
  Receipt Date: 20110110
  Transmission Date: 20110831
  Serious: Yes (Hospitalization, Other)
  Sender: FDA-Public Use
  Company Number: FR-ELI_LILLY_AND_COMPANY-FR201101002450

PATIENT
  Age: 37 Year
  Sex: Male

DRUGS (4)
  1. IMOVANE [Concomitant]
     Dosage: UNK, UNKNOWN
     Route: 048
  2. ZYPADHERA [Suspect]
     Indication: SCHIZOPHRENIA
     Dosage: 405 MG, UNKNOWN
     Route: 030
  3. PANTOPRAZOLE [Concomitant]
     Dosage: UNK, UNKNOWN
     Route: 048
  4. SERESTA [Concomitant]
     Dosage: UNK, UNKNOWN
     Route: 048

REACTIONS (9)
  - SEDATION [None]
  - SOMNOLENCE [None]
  - CONFUSIONAL STATE [None]
  - MIOSIS [None]
  - SPEECH DISORDER [None]
  - STUPOR [None]
  - EXTRAPYRAMIDAL DISORDER [None]
  - BLOOD CREATINE PHOSPHOKINASE INCREASED [None]
  - OVERDOSE [None]
